FAERS Safety Report 11241287 (Version 2)
Quarter: 2015Q3

REPORT INFORMATION
  Report Type: Spontaneous
  Country: US (occurrence: US)
  Receive Date: 20150706
  Receipt Date: 20150709
  Transmission Date: 20151125
  Serious: Yes (Hospitalization)
  Sender: FDA-Public Use
  Company Number: US-UNITED THERAPEUTICS-UNT-2015-007837

PATIENT
  Age: 56 Year
  Sex: Male
  Weight: 138.78 kg

DRUGS (1)
  1. REMODULIN [Suspect]
     Active Substance: TREPROSTINIL
     Indication: PULMONARY HYPERTENSION
     Dosage: 0.006 ?G/KG, CONTINUING
     Route: 041
     Dates: start: 20150618

REACTIONS (2)
  - Device related infection [Unknown]
  - Thrombosis in device [Unknown]

NARRATIVE: CASE EVENT DATE: 201506
